FAERS Safety Report 15466588 (Version 1)
Quarter: 2018Q4

REPORT INFORMATION
  Report Type: Spontaneous
  Country: HR (occurrence: HR)
  Receive Date: 20181005
  Receipt Date: 20181005
  Transmission Date: 20190204
  Serious: Yes (Other)
  Sender: FDA-Public Use
  Company Number: HR-AMGEN-HRVSP2018138120

PATIENT
  Age: 65 Year
  Sex: Male

DRUGS (10)
  1. PANITUMUMAB [Suspect]
     Active Substance: PANITUMUMAB
     Indication: ADENOCARCINOMA OF COLON
     Dosage: UNK
     Route: 065
     Dates: start: 201503
  2. 5-FU [Concomitant]
     Active Substance: FLUOROURACIL
     Indication: ADENOCARCINOMA OF COLON
     Dosage: 18 CYCLES (MAR/2015 - SEP/2015); 12 CYCLES (APR/2017-SEP/2017); 5 CYCLES (FEB/2018-APR/2018)
     Dates: start: 201503
  3. IRINOTECAN [Concomitant]
     Active Substance: IRINOTECAN
     Indication: ADENOCARCINOMA OF COLON
     Dosage: 18 CYCLES (MAR/2015 - SEP/2015); 12 CYCLES (APR/2017-SEP/2017)
     Dates: start: 201503
  4. CAPECITABINE. [Concomitant]
     Active Substance: CAPECITABINE
     Indication: ADENOCARCINOMA OF COLON
     Dosage: 12 CYCLES (DEC/2015-SEP/2016); MAINTENANCE THERAPY (OCT/2017-JAN/2018)
     Dates: start: 201512
  5. AVASTIN [Concomitant]
     Active Substance: BEVACIZUMAB
     Indication: ADENOCARCINOMA OF COLON
     Dosage: 18 CYCLES (MAR/15-SEP/15); 12 CYCLES (DEC/15-SEP/16); 12 CYCLES (APR/17-SEP/17); M.T.(OCT/17-JAN/18)
     Dates: start: 201503
  6. PANITUMUMAB [Suspect]
     Active Substance: PANITUMUMAB
     Dosage: 6 MG/KG, Q2WK
     Route: 065
     Dates: start: 201807
  7. KLIMICIN [Concomitant]
     Active Substance: CLINDAMYCIN PHOSPHATE
     Dosage: UNK
  8. PROSURE [Concomitant]
     Dosage: UNK
  9. FOLINIC ACID [Concomitant]
     Active Substance: LEUCOVORIN
     Indication: ADENOCARCINOMA OF COLON
     Dosage: 18 CYCLES (MAR/2015 - SEP/2015); 12 CYCLES (APR/2017-SEP/2017); 5 CYCLES (FEB/2018-APR/2018)
     Dates: start: 201503
  10. OXALIPLATIN. [Concomitant]
     Active Substance: OXALIPLATIN
     Indication: ADENOCARCINOMA OF COLON
     Dosage: 5 CYCLES (FEB/2018-APR/2018)
     Dates: start: 201802

REACTIONS (3)
  - Diabetes mellitus [Unknown]
  - Malignant neoplasm progression [Recovering/Resolving]
  - Off label use [Unknown]

NARRATIVE: CASE EVENT DATE: 201503
